FAERS Safety Report 8873865 (Version 1)
Quarter: 2012Q4

REPORT INFORMATION
  Report Type: 
  Country: IT (occurrence: IT)
  Receive Date: 20121030
  Receipt Date: 20121030
  Transmission Date: 20130627
  Serious: Yes (Hospitalization)
  Sender: FDA-Public Use
  Company Number: PHHY2012IT095257

PATIENT
  Age: 79 Year
  Sex: Female

DRUGS (2)
  1. INDAPAMIDE\PERINDOPRIL [Suspect]
     Route: 048
     Dates: start: 20110805
  2. ATENOLOL [Suspect]
     Route: 048
     Dates: start: 20110805

REACTIONS (2)
  - Presyncope [Recovering/Resolving]
  - Heart rate decreased [Unknown]
